FAERS Safety Report 10155420 (Version 2)
Quarter: 2014Q2

REPORT INFORMATION
  Report Type: Report from Study
  Country: AR (occurrence: AR)
  Receive Date: 20140506
  Receipt Date: 20140509
  Transmission Date: 20141212
  Serious: Yes (Death, Life-Threatening, Hospitalization)
  Sender: FDA-Public Use
  Company Number: AR-BAYER-2014-064234

PATIENT
  Age: 51 Year
  Sex: Female

DRUGS (2)
  1. SORAFENIB (RAF KINASE INHIBITOR) [Suspect]
     Indication: THYROID CANCER METASTATIC
     Dosage: 400 MG, BID
     Route: 048
  2. SORAFENIB (RAF KINASE INHIBITOR) [Suspect]
     Indication: METASTASES TO BONE

REACTIONS (3)
  - Cardiac failure [Recovered/Resolved]
  - Off label use [None]
  - Sudden death [Fatal]
